FAERS Safety Report 19809268 (Version 1)
Quarter: 2021Q3

REPORT INFORMATION
  Report Type: Spontaneous
  Country: US (occurrence: US)
  Receive Date: 20210908
  Receipt Date: 20210908
  Transmission Date: 20211014
  Serious: No
  Sender: FDA-Public Use
  Company Number: US-GILEAD-2021-0547719

PATIENT
  Sex: Male

DRUGS (6)
  1. VEMLIDY [Suspect]
     Active Substance: TENOFOVIR ALAFENAMIDE FUMARATE
     Indication: HEPATITIS B
     Dosage: 1 DOSAGE FORM, QD
     Route: 048
     Dates: start: 202104
  2. AMLODIPINE BESYLATE. [Concomitant]
     Active Substance: AMLODIPINE BESYLATE
  3. CARVEDILOL. [Concomitant]
     Active Substance: CARVEDILOL
  4. LOSARTAN POTASSIUM. [Concomitant]
     Active Substance: LOSARTAN POTASSIUM
  5. COENZYME Q10 [Concomitant]
     Active Substance: DIETARY SUPPLEMENT\UBIDECARENONE
  6. PRASUGREL. [Concomitant]
     Active Substance: PRASUGREL

REACTIONS (1)
  - Product use issue [Not Recovered/Not Resolved]
